FAERS Safety Report 5705376-0 (Version None)
Quarter: 2008Q2

REPORT INFORMATION
  Report Type: 
  Country: None (occurrence: None)
  Receive Date: 20080415
  Receipt Date: 20080408
  Transmission Date: 20081010
  Serious: Yes (Death, Other)
  Sender: FDA-Public Use
  Company Number: US-BRISTOL-MYERS SQUIBB COMPANY-13866306

PATIENT
  Age: 54 Year
  Sex: Male

DRUGS (3)
  1. BARACLUDE [Suspect]
     Indication: HEPATITIS B
  2. HEPSERA [Suspect]
     Indication: HEPATITIS B
  3. PREDNISONE [Concomitant]

REACTIONS (2)
  - LACTIC ACIDOSIS [None]
  - RENAL FAILURE [None]
